FAERS Safety Report 8574358-6 (Version None)
Quarter: 2012Q3

REPORT INFORMATION
  Report Type: 
  Country: None (occurrence: None)
  Receive Date: 20120806
  Receipt Date: 20120802
  Transmission Date: 20120928
  Serious: Yes (Death, Life-Threatening)
  Sender: FDA-Public Use
  Company Number: JP-ABBOTT-11P-087-0702318-00

PATIENT
  Sex: Male
  Weight: 65 kg

DRUGS (6)
  1. AMLODIPINE BESYLATE [Concomitant]
     Indication: RHEUMATOID ARTHRITIS
     Route: 048
  2. METHOTREXATE [Suspect]
     Indication: RHEUMATOID ARTHRITIS
     Route: 048
     Dates: start: 20090701, end: 20110121
  3. HUMIRA [Suspect]
     Indication: RHEUMATOID ARTHRITIS
     Route: 058
     Dates: start: 20100713, end: 20110112
  4. PREDNISOLONE [Concomitant]
     Indication: RHEUMATOID ARTHRITIS
     Dates: start: 20090928
  5. METHOTREXATE [Concomitant]
     Route: 048
     Dates: start: 20090801
  6. DICLOFENAC SODIUM [Concomitant]
     Indication: RHEUMATOID ARTHRITIS
     Route: 048
     Dates: start: 20100510

REACTIONS (4)
  - ARTHRALGIA [None]
  - JOINT SWELLING [None]
  - PNEUMOCYSTIS JIROVECI PNEUMONIA [None]
  - DECREASED APPETITE [None]
